FAERS Safety Report 7720800-X (Version None)
Quarter: 2011Q3

REPORT INFORMATION
  Report Type: 
  Country: None (occurrence: None)
  Receive Date: 20110830
  Receipt Date: 20110830
  Transmission Date: 20111222
  Serious: No
  Sender: FDA-Public Use
  Company Number: None

PATIENT
  Age: 77 Year
  Sex: Female
  Weight: 47.6277 kg

DRUGS (1)
  1. CIPROFLOXACIN [Suspect]
     Indication: CYSTITIS
     Dosage: I ONLY TOOK 2 DOSES P.O.
     Route: 048
     Dates: start: 20100906, end: 20100907

REACTIONS (1)
  - HALLUCINATION, VISUAL [None]
